FAERS Safety Report 6569226-5 (Version None)
Quarter: 2010Q1

REPORT INFORMATION
  Report Type: 
  Country: None (occurrence: None)
  Receive Date: 20100201
  Receipt Date: 20100201
  Transmission Date: 20100710
  Serious: Yes (Hospitalization)
  Sender: FDA-Public Use
  Company Number: None

PATIENT
  Age: 77 Year
  Weight: 80.7403 kg

DRUGS (1)
  1. METFORMIN HCL [Suspect]
     Indication: DIABETES MELLITUS
     Dosage: 1 TABLET TWICE A DAY EVERY DAY BUCCAL
     Route: 002

REACTIONS (3)
  - DECREASED ACTIVITY [None]
  - MALAISE [None]
  - PULMONARY EMBOLISM [None]
